FAERS Safety Report 7824256-8 (Version None)
Quarter: 2011Q4

REPORT INFORMATION
  Report Type: 
  Country: None (occurrence: None)
  Receive Date: 20111019
  Receipt Date: 20111011
  Transmission Date: 20120403
  Serious: Yes (Life-Threatening, Hospitalization, Other)
  Sender: FDA-Public Use
  Company Number: US-CELGENEUS-163-21880-11091804

PATIENT
  Sex: Male
  Weight: 83.99 kg

DRUGS (4)
  1. REVLIMID [Suspect]
     Dosage: 10 MILLIGRAM
     Route: 048
     Dates: start: 20110808, end: 20110902
  2. DECADRON [Concomitant]
     Route: 065
  3. PREDNISONE [Concomitant]
     Dosage: TAPER
     Route: 065
  4. LIPITOR [Concomitant]
     Route: 065

REACTIONS (3)
  - RENAL FAILURE [None]
  - TUMOUR LYSIS SYNDROME [None]
  - RASH [None]
